FAERS Safety Report 24346237 (Version 1)
Quarter: 2024Q3

REPORT INFORMATION
  Report Type: Spontaneous
  Country: US (occurrence: US)
  Receive Date: 20240921
  Receipt Date: 20240921
  Transmission Date: 20241017
  Serious: No
  Sender: UNITED THERAPEUTICS
  Company Number: US-UNITED THERAPEUTICS-UNT-2024-029120

PATIENT
  Sex: Male

DRUGS (6)
  1. TYVASO [Suspect]
     Active Substance: TREPROSTINIL
     Indication: Product used for unknown indication
     Dosage: UNK
  2. OPSUMIT [Suspect]
     Active Substance: MACITENTAN
     Indication: Pulmonary arterial hypertension
     Dosage: 10 MG, QD
     Dates: start: 20240618, end: 202406
  3. OPSUMIT [Suspect]
     Active Substance: MACITENTAN
     Dosage: 10 MG, QD
     Dates: start: 2024, end: 2024
  4. OPSUMIT [Suspect]
     Active Substance: MACITENTAN
     Dosage: 10 MG, QD (RESTARTED)
     Dates: start: 20240702, end: 2024
  5. ALBUTEROL [Concomitant]
     Active Substance: ALBUTEROL
     Indication: Product used for unknown indication
     Dosage: UNK
  6. OXYGEN [Concomitant]
     Active Substance: OXYGEN
     Indication: Dyspnoea
     Dosage: UNK

REACTIONS (2)
  - Cough [Unknown]
  - Dyspnoea [Unknown]

NARRATIVE: CASE EVENT DATE: 20240101
